FAERS Safety Report 8003148-8 (Version None)
Quarter: 2011Q4

REPORT INFORMATION
  Report Type: 
  Country: None (occurrence: None)
  Receive Date: 20111222
  Receipt Date: 20111213
  Transmission Date: 20120403
  Serious: Yes (Disabling, Other)
  Sender: FDA-Public Use
  Company Number: PHHY2011DE47139

PATIENT
  Sex: Female

DRUGS (1)
  1. ZADITEN [Suspect]

REACTIONS (4)
  - BONE DEVELOPMENT ABNORMAL [None]
  - CYTOGENETIC ABNORMALITY [None]
  - SPINAL DISORDER [None]
  - TOOTH DEVELOPMENT DISORDER [None]
